FAERS Safety Report 4822065-5 (Version None)
Quarter: 2005Q4

REPORT INFORMATION
  Report Type: 
  Country: None (occurrence: None)
  Receive Date: 20051103
  Receipt Date: 20051019
  Transmission Date: 20060501
  Serious: Yes (Death, Other)
  Sender: FDA-Public Use
  Company Number: 2005-BP-18529RO

PATIENT
  Age: 59 Year
  Sex: Female

DRUGS (4)
  1. HYDROXYUREA [Suspect]
     Indication: THROMBOCYTOPENIA
     Dates: start: 19890101
  2. BUSULFAN (BUSULFAN) [Suspect]
     Indication: THROMBOCYTOPENIA
     Dates: start: 19910101
  3. CISPLATIN [Suspect]
     Indication: NEUROENDOCRINE CARCINOMA
  4. ETOPOSIDE [Suspect]
     Indication: NEUROENDOCRINE CARCINOMA

REACTIONS (8)
  - ACTINIC KERATOSIS [None]
  - BOWEN'S DISEASE [None]
  - DRUG INEFFECTIVE [None]
  - DRUG TOLERANCE DECREASED [None]
  - METASTASES TO LIVER [None]
  - METASTASES TO LYMPH NODES [None]
  - NEUROENDOCRINE CARCINOMA OF THE SKIN [None]
  - SKIN DISORDER [None]
